FAERS Safety Report 19144884 (Version 1)
Quarter: 2021Q2

REPORT INFORMATION
  Report Type: Spontaneous
  Country: US (occurrence: US)
  Receive Date: 20210416
  Receipt Date: 20210416
  Transmission Date: 20210717
  Serious: Yes (Death)
  Sender: FDA-Public Use
  Company Number: None

PATIENT
  Age: 79 Year
  Sex: Female

DRUGS (3)
  1. TADALAFIL. [Suspect]
     Active Substance: TADALAFIL
     Indication: PULMONARY ARTERIAL HYPERTENSION
     Route: 048
     Dates: start: 20210128, end: 20210404
  2. GABAPENTIN, NIFEDIPINE, METOPROLOL TARTRATE, MYCOPHENOLATE [Concomitant]
  3. POTASSIUM CHLORIDE, ALENDRONATE, SMZ/TMP, SPIRIVA, PREDNISONE [Concomitant]

REACTIONS (1)
  - Death [None]

NARRATIVE: CASE EVENT DATE: 20210404
